FAERS Safety Report 19462337 (Version 1)
Quarter: 2021Q2

REPORT INFORMATION
  Report Type: Report from Study
  Country: DE (occurrence: DE)
  Receive Date: 20210625
  Receipt Date: 20210625
  Transmission Date: 20210717
  Serious: Yes (Hospitalization)
  Sender: FDA-Public Use
  Company Number: NVSC2021DE038349

PATIENT
  Age: 40 Year
  Sex: Female
  Weight: 68 kg

DRUGS (22)
  1. EPIRUBICIN [Suspect]
     Active Substance: EPIRUBICIN
     Indication: NEOPLASM MALIGNANT
     Dosage: 159.30 MG, Q3W
     Route: 042
     Dates: start: 20201230, end: 20210122
  2. CETIRIZIN [Concomitant]
     Active Substance: CETIRIZINE HYDROCHLORIDE
     Indication: PARAESTHESIA
     Dosage: 10 MG, QD
     Route: 048
     Dates: start: 20200803, end: 20210202
  3. CETIRIZIN [Concomitant]
     Active Substance: CETIRIZINE HYDROCHLORIDE
     Indication: RASH
  4. NOVALGIN [Concomitant]
     Indication: HEADACHE
     Dosage: ON DEMAND
     Route: 065
  5. NOVALGIN [Concomitant]
     Indication: VOMITING
  6. NOVALGIN [Concomitant]
     Indication: NAUSEA
  7. METOCLOPRAMIDE. [Concomitant]
     Active Substance: METOCLOPRAMIDE
     Indication: NAUSEA
  8. BIOTIN [Concomitant]
     Active Substance: BIOTIN
     Indication: ALOPECIA
     Dosage: 10 MG, QD
     Route: 048
     Dates: start: 20200525, end: 20210202
  9. BEPANTHEN [Concomitant]
     Indication: RASH
     Dosage: 2.20 UNITS, BID
     Route: 004
     Dates: start: 20201111, end: 20201202
  10. EUCERIN UREA [Concomitant]
     Indication: RASH
  11. CYCLOPHOSPHAMIDE. [Suspect]
     Active Substance: CYCLOPHOSPHAMIDE
     Indication: NEOPLASM MALIGNANT
     Dosage: 1062 MG, Q3W
     Route: 042
     Dates: start: 20201230, end: 20210122
  12. LETROZOLE. [Suspect]
     Active Substance: LETROZOLE
     Indication: HER2 NEGATIVE BREAST CANCER
     Dosage: UNK
     Route: 048
  13. METOCLOPRAMIDE. [Concomitant]
     Active Substance: METOCLOPRAMIDE
     Indication: HEADACHE
     Dosage: UNK
     Route: 065
  14. METOCLOPRAMIDE. [Concomitant]
     Active Substance: METOCLOPRAMIDE
     Indication: VOMITING
  15. CIPROFLOXACIN. [Concomitant]
     Active Substance: CIPROFLOXACIN
     Indication: PROPHYLAXIS
     Dosage: 500 MG, BID FOR 5 DAYS
     Route: 065
     Dates: start: 20210212
  16. ACETAMINOPHEN. [Concomitant]
     Active Substance: ACETAMINOPHEN
     Indication: PRODUCT USED FOR UNKNOWN INDICATION
     Route: 065
  17. LEE011 [Suspect]
     Active Substance: RIBOCICLIB
     Indication: HER2 NEGATIVE BREAST CANCER
     Dosage: 600 MG, QD
     Route: 048
     Dates: start: 20200427, end: 20201201
  18. EUCERIN UREA [Concomitant]
     Indication: PRURITUS
     Dosage: 1 UNITS, BID
     Route: 004
     Dates: start: 20200721, end: 20210212
  19. DOCETAXEL. [Concomitant]
     Active Substance: DOCETAXEL
     Indication: CHEMOTHERAPY
     Dosage: 4X, Q3W
     Route: 065
     Dates: start: 20201230
  20. NOVALGIN [Concomitant]
     Indication: HEADACHE
  21. METOCLOPRAMIDE. [Concomitant]
     Active Substance: METOCLOPRAMIDE
     Indication: HEADACHE
  22. CIPROFLOXACIN. [Concomitant]
     Active Substance: CIPROFLOXACIN
     Indication: LEUKOPENIA

REACTIONS (1)
  - Transaminases increased [Recovered/Resolved]

NARRATIVE: CASE EVENT DATE: 20210212
